FAERS Safety Report 19000548 (Version 1)
Quarter: 2021Q1

REPORT INFORMATION
  Report Type: Other
  Country: CA (occurrence: CA)
  Receive Date: 20210311
  Receipt Date: 20210311
  Transmission Date: 20210420
  Serious: Yes (Hospitalization)
  Sender: FDA-Public Use
  Company Number: CA-B.BRAUN MEDICAL INC.-2107874

PATIENT
  Sex: Male

DRUGS (1)
  1. ACETAMINOPHEN INJECTION 1,000 MG/100 ML (10 MG/ML) ? NDA 204957 [Suspect]
     Active Substance: ACETAMINOPHEN

REACTIONS (2)
  - Liver injury [Recovered/Resolved]
  - Encephalopathy [Recovered/Resolved]
